FAERS Safety Report 10237266 (Version 2)
Quarter: 2014Q2

REPORT INFORMATION
  Report Type: Spontaneous
  Country: US (occurrence: US)
  Receive Date: 20140613
  Receipt Date: 20140613
  Transmission Date: 20141212
  Serious: No
  Sender: FDA-Public Use
  Company Number: US-ASTRAZENECA-2014SE21537

PATIENT
  Age: 25651 Day
  Sex: Female

DRUGS (2)
  1. SYMBICORT [Suspect]
     Dosage: 160/4.5 MCG, 2 PUFFS BID
     Route: 055
     Dates: start: 201204
  2. NEXIUM [Suspect]
     Route: 048
     Dates: start: 201204

REACTIONS (2)
  - Feeling abnormal [Unknown]
  - Nasopharyngitis [Unknown]
